FAERS Safety Report 24454059 (Version 2)
Quarter: 2024Q4

REPORT INFORMATION
  Report Type: Report from Study
  Country: US (occurrence: US)
  Receive Date: 20241017
  Receipt Date: 20241018
  Transmission Date: 20250115
  Serious: No
  Sender: ROCHE
  Company Number: US-ROCHE-3443014

PATIENT
  Age: 75 Year
  Sex: Male

DRUGS (2)
  1. RITUXAN [Suspect]
     Active Substance: RITUXIMAB
     Indication: Warm autoimmune haemolytic anaemia
     Dosage: INFUSE 896MG INTRAVENOUSLY EVERY WEEK FOR 4 WEEKS, VIAL 50 ML
     Route: 041
  2. RITUXAN [Suspect]
     Active Substance: RITUXIMAB
     Dosage: INFUSE 896MG INTRAVENOUSLY EVERY WEEKS FOR 4 WEEKS, VAIL 10 ML
     Route: 042

REACTIONS (3)
  - Off label use [Unknown]
  - Product prescribing error [Unknown]
  - No adverse event [Unknown]
